FAERS Safety Report 18372882 (Version 1)
Quarter: 2020Q4

REPORT INFORMATION
  Report Type: Spontaneous
  Country: DE (occurrence: DE)
  Receive Date: 20201012
  Receipt Date: 20201012
  Transmission Date: 20210114
  Serious: Yes (Other)
  Sender: FDA-Public Use
  Company Number: DE-PFIZER INC-2020388156

PATIENT
  Sex: Male
  Weight: 4 kg

DRUGS (2)
  1. CYTOTEC [Suspect]
     Active Substance: MISOPROSTOL
     Indication: LABOUR INDUCTION
  2. CYTOTEC [Suspect]
     Active Substance: MISOPROSTOL
     Indication: AMNIOTIC FLUID VOLUME DECREASED
     Dosage: 4 DF, SINGLE (2X2 TABLETS)
     Route: 064
     Dates: start: 20200807, end: 20200807

REACTIONS (4)
  - Cerebral haemorrhage neonatal [Recovered/Resolved]
  - Infantile apnoea [Recovered/Resolved]
  - Neonatal seizure [Recovered/Resolved]
  - Cyanosis neonatal [Unknown]

NARRATIVE: CASE EVENT DATE: 20200808
